FAERS Safety Report 7039401-4 (Version None)
Quarter: 2010Q4

REPORT INFORMATION
  Report Type: 
  Country: None (occurrence: None)
  Receive Date: 20101012
  Receipt Date: 20101001
  Transmission Date: 20110411
  Serious: Yes (Other)
  Sender: FDA-Public Use
  Company Number: CA-JNJFOC-20100507753

PATIENT
  Sex: Male
  Weight: 77.5 kg

DRUGS (6)
  1. REMICADE [Suspect]
     Indication: FISTULA
     Route: 042
  2. REMICADE [Suspect]
     Indication: CROHN'S DISEASE
     Route: 042
  3. PENTASA [Concomitant]
  4. MESALAMINE [Concomitant]
  5. ADVIL [Concomitant]
  6. TYLENOL W/ CODEINE NO. 3 [Concomitant]

REACTIONS (3)
  - ANAL FISTULA [None]
  - FATIGUE [None]
  - WEIGHT DECREASED [None]
